FAERS Safety Report 5250520-5 (Version None)
Quarter: 2007Q1

REPORT INFORMATION
  Report Type: 
  Country: None (occurrence: None)
  Receive Date: 20061201
  Receipt Date: 20060821
  Transmission Date: 20070707
  Serious: No
  Sender: FDA-Public Use
  Company Number: 2006PV019819

PATIENT
  Age: 71 Year
  Sex: Male

DRUGS (3)
  1. BYETTA [Suspect]
     Indication: DIABETES MELLITUS NON-INSULIN-DEPENDENT
     Dosage: SEE IMAGE
     Route: 058
     Dates: start: 20060801
  2. METFORMIN HCL [Concomitant]
  3. GLIPIZIDE [Concomitant]

REACTIONS (6)
  - DECREASED APPETITE [None]
  - DYSGEUSIA [None]
  - FATIGUE [None]
  - FEELING ABNORMAL [None]
  - FEELING JITTERY [None]
  - VOMITING [None]
